FAERS Safety Report 24750986 (Version 1)
Quarter: 2024Q4

REPORT INFORMATION
  Report Type: Spontaneous
  Country: US (occurrence: US)
  Receive Date: 20241219
  Receipt Date: 20241219
  Transmission Date: 20250114
  Serious: No
  Sender: CSL BEHRING
  Company Number: US-BEH-2024187926

PATIENT
  Age: 65 Year
  Sex: Female
  Weight: 63.49 kg

DRUGS (6)
  1. PRIVIGEN [Suspect]
     Active Substance: HUMAN IMMUNOGLOBULIN G
     Indication: Product used for unknown indication
     Route: 065
  2. BRUKINSA [Suspect]
     Active Substance: ZANUBRUTINIB
     Indication: Lymphocytic leukaemia
     Dosage: 160 MG, BID
     Route: 048
     Dates: start: 20240705
  3. BRUKINSA [Suspect]
     Active Substance: ZANUBRUTINIB
     Dosage: 160 MG, BID
     Route: 048
     Dates: start: 20240705
  4. BRUKINSA [Suspect]
     Active Substance: ZANUBRUTINIB
     Dosage: 160 MG, BID
     Route: 048
     Dates: start: 20240705
  5. BRUKINSA [Suspect]
     Active Substance: ZANUBRUTINIB
     Dosage: 160 MG, BID
     Route: 048
     Dates: start: 20240705
  6. BRUKINSA [Suspect]
     Active Substance: ZANUBRUTINIB
     Dosage: 160 MG, BID
     Route: 048
     Dates: start: 20240705

REACTIONS (11)
  - Pain in extremity [Unknown]
  - Vitamin B12 decreased [Unknown]
  - Blood glucose abnormal [Unknown]
  - Fatigue [Unknown]
  - Petechiae [Unknown]
  - Pruritus [Unknown]
  - Increased tendency to bruise [Unknown]
  - Osteoporosis [Unknown]
  - Infusion related reaction [Unknown]
  - Headache [Unknown]
  - Product dose omission issue [Unknown]
